FAERS Safety Report 20539400 (Version 1)
Quarter: 2022Q1

REPORT INFORMATION
  Report Type: Spontaneous
  Country: CN (occurrence: CN)
  Receive Date: 20220302
  Receipt Date: 20220302
  Transmission Date: 20220423
  Serious: Yes (Other)
  Sender: FDA-Public Use
  Company Number: CN-BAYER-2022A031215

PATIENT
  Age: 59 Year
  Sex: Female
  Weight: 78 kg

DRUGS (2)
  1. IOPROMIDE [Suspect]
     Active Substance: IOPROMIDE
     Indication: Coronary artery disease
     Dosage: 30 ML, ONCE
     Route: 042
     Dates: start: 20220124, end: 20220124
  2. IOPROMIDE [Suspect]
     Active Substance: IOPROMIDE
     Indication: Angiocardiogram

REACTIONS (4)
  - Contrast encephalopathy [Recovering/Resolving]
  - Diplopia [Recovering/Resolving]
  - Dizziness [Recovering/Resolving]
  - Asthenia [Recovering/Resolving]

NARRATIVE: CASE EVENT DATE: 20220124
